FAERS Safety Report 7320627-7 (Version None)
Quarter: 2011Q1

REPORT INFORMATION
  Report Type: 
  Country: None (occurrence: None)
  Receive Date: 20110228
  Receipt Date: 20110217
  Transmission Date: 20110831
  Serious: Yes (Hospitalization)
  Sender: FDA-Public Use
  Company Number: US-JNJFOC-20110206437

PATIENT
  Age: 12 Year
  Sex: Female

DRUGS (11)
  1. ANTIBIOTICS [Concomitant]
     Indication: INFLAMMATORY BOWEL DISEASE
  2. POSTURE-D WHITEHALL [Concomitant]
  3. INFLIXIMAB, RECOMBINANT [Suspect]
     Route: 042
  4. BUDESONIDE [Concomitant]
  5. INFLIXIMAB, RECOMBINANT [Suspect]
     Indication: COLITIS
     Route: 042
  6. GOLYTELY NOS [Concomitant]
  7. PROBIOTICS [Concomitant]
  8. MESALAMINE [Concomitant]
  9. FERROUS SULFATE TAB [Concomitant]
  10. HUMALOG [Concomitant]
  11. PREDNISONE [Concomitant]

REACTIONS (6)
  - INFLAMMATORY BOWEL DISEASE [None]
  - COLITIS [None]
  - TREATMENT NONCOMPLIANCE [None]
  - IRON DEFICIENCY ANAEMIA [None]
  - DECREASED APPETITE [None]
  - HAEMATOCHEZIA [None]
